FAERS Safety Report 8885687 (Version 2)
Quarter: 2012Q4

REPORT INFORMATION
  Report Type: 
  Country: BR (occurrence: BR)
  Receive Date: 20121102
  Receipt Date: 20121225
  Transmission Date: 20130627
  Serious: Yes (Hospitalization, Other)
  Sender: FDA-Public Use
  Company Number: BR-AMGEN-BRASP2012069689

PATIENT
  Age: 62 Year
  Sex: Male
  Weight: 60 kg

DRUGS (11)
  1. ENBREL [Suspect]
     Indication: RHEUMATOID ARTHRITIS
     Dosage: 50 mg, qwk
     Route: 058
     Dates: start: 201007
  2. ENBREL [Suspect]
     Dosage: 50 mg, qwk
     Route: 058
     Dates: start: 201207
  3. CARVEDILOL [Concomitant]
     Indication: HYPERTENSION
     Dosage: 2 tablets of 25mg daily
     Route: 048
  4. CARVEDILOL [Concomitant]
     Dosage: 2 tablets of 25mf daily
  5. LOSARTAN [Concomitant]
     Indication: HYPERTENSION
     Dosage: UNK
  6. METHOTREXATE [Concomitant]
     Indication: RHEUMATOID ARTHRITIS
     Dosage: 6 tablets of 2.5mg weekly (three times weekly)
     Route: 048
  7. METHOTREXATE [Concomitant]
     Dosage: 6 tablets of 2.5mg weekly (three times weekly)
     Route: 048
  8. ADDERA D3 [Concomitant]
     Dosage: 10 Gtt, 1x/day
     Route: 048
  9. AAS [Concomitant]
     Dosage: 2 tablets of 100mg daily
     Route: 048
  10. ANCORON [Concomitant]
     Dosage: one tablet of 100mg daily (From Monday to Friday)
     Route: 048
  11. FOLIC ACID [Concomitant]
     Dosage: 5 mg, 2x/week (monday and wednesday)
     Route: 048

REACTIONS (6)
  - Cardiac disorder [Unknown]
  - Rheumatoid arthritis [Not Recovered/Not Resolved]
  - Product quality issue [Unknown]
  - Injection site mass [Not Recovered/Not Resolved]
  - Injection site swelling [Not Recovered/Not Resolved]
  - Drug ineffective [Not Recovered/Not Resolved]
